FAERS Safety Report 8058688-2 (Version None)
Quarter: 2012Q1

REPORT INFORMATION
  Report Type: 
  Country: None (occurrence: None)
  Receive Date: 20120119
  Receipt Date: 20120119
  Transmission Date: 20120608
  Serious: Yes (Hospitalization)
  Sender: FDA-Public Use
  Company Number: None

PATIENT
  Sex: Male
  Weight: 63.05 kg

DRUGS (8)
  1. LENALIDOMIDE [Suspect]
     Indication: HEPATIC NEOPLASM MALIGNANT
     Dosage: 20MG DAILY/ORAL
     Route: 048
     Dates: start: 20111123, end: 20120111
  2. LASIX [Concomitant]
  3. BCOMPLEX/B12 VITAMIN [Concomitant]
  4. HUMALOG [Concomitant]
  5. LANTUS [Concomitant]
  6. PROTONIX [Concomitant]
  7. SUCRALFATE [Concomitant]
  8. MORPHINE [Concomitant]

REACTIONS (5)
  - BACTERIAL SEPSIS [None]
  - CHOLANGITIS [None]
  - HEPATIC NEOPLASM MALIGNANT [None]
  - NEOPLASM PROGRESSION [None]
  - DEVICE OCCLUSION [None]
